FAERS Safety Report 5352037-6 (Version None)
Quarter: 2007Q2

REPORT INFORMATION
  Report Type: 
  Country: None (occurrence: None)
  Receive Date: 20070607
  Receipt Date: 20070607
  Transmission Date: 20071010
  Serious: No
  Sender: FDA-Public Use
  Company Number: None

PATIENT
  Sex: Female
  Weight: 62.1 kg

DRUGS (2)
  1. CARBOPLATIN [Suspect]
     Dosage: 670 MG
  2. TAXOL [Suspect]
     Dosage: 300 MG

REACTIONS (1)
  - NEUTROPHIL COUNT DECREASED [None]
